FAERS Safety Report 10018098 (Version 1)
Quarter: 2014Q1

REPORT INFORMATION
  Report Type: Spontaneous
  Country: US (occurrence: US)
  Receive Date: 20140318
  Receipt Date: 20140318
  Transmission Date: 20141002
  Serious: No
  Sender: FDA-Public Use
  Company Number: US-BRISTOL-MYERS SQUIBB COMPANY-18960039

PATIENT
  Age: 73 Year
  Sex: Male
  Weight: 97.96 kg

DRUGS (24)
  1. ERBITUX [Suspect]
     Indication: COLORECTAL CANCER
     Dates: start: 20130311
  2. CAMPTOSAR [Suspect]
  3. NORVASC [Concomitant]
  4. LOTENSIN [Concomitant]
  5. LASIX [Concomitant]
  6. IMDUR [Concomitant]
  7. PROTONIX [Concomitant]
  8. POTASSIUM [Concomitant]
  9. VESICARE [Concomitant]
  10. BAYER ASPIRIN [Concomitant]
  11. ENSURE [Concomitant]
  12. CRESTOR [Concomitant]
  13. TOPROL XL [Concomitant]
  14. BENADRYL [Concomitant]
  15. VALIUM [Concomitant]
     Indication: SLEEP DISORDER
  16. NITROSTAT [Concomitant]
     Indication: ANGINA PECTORIS
  17. ZOFRAN [Concomitant]
     Indication: VOMITING
  18. ZOFRAN [Concomitant]
     Indication: NAUSEA
  19. OXYCODONE [Concomitant]
     Dosage: 1DF=5-325MG
  20. PERCOCET [Concomitant]
     Dosage: 1DF=5-325MG PRN
  21. RESTORIL [Concomitant]
  22. IMODIUM [Concomitant]
  23. TUMS [Concomitant]
  24. CORICIDIN [Concomitant]

REACTIONS (6)
  - Rash [Unknown]
  - Diarrhoea [Unknown]
  - Alopecia [Unknown]
  - Cystitis [Not Recovered/Not Resolved]
  - Constipation [Unknown]
  - Weight decreased [Unknown]
